FAERS Safety Report 13598458 (Version 2)
Quarter: 2017Q2

REPORT INFORMATION
  Report Type: Spontaneous
  Country: PT (occurrence: PT)
  Receive Date: 20170531
  Receipt Date: 20170608
  Transmission Date: 20170830
  Serious: Yes (Hospitalization)
  Sender: FDA-Public Use
  Company Number: PT-BAYER-2017-098789

PATIENT
  Age: 54 Year
  Sex: Female

DRUGS (1)
  1. GADOVIST [Suspect]
     Active Substance: GADOBUTROL
     Indication: NUCLEAR MAGNETIC RESONANCE IMAGING SPINAL
     Dosage: 1 ML, ONCE
     Route: 042
     Dates: start: 20170518, end: 20170518

REACTIONS (4)
  - Headache [Recovering/Resolving]
  - Photophobia [Recovering/Resolving]
  - Vomiting [Recovering/Resolving]
  - Hypertension [Recovering/Resolving]

NARRATIVE: CASE EVENT DATE: 20170518
